FAERS Safety Report 17355841 (Version 3)
Quarter: 2020Q2

REPORT INFORMATION
  Report Type: Report from Study
  Country: US (occurrence: US)
  Receive Date: 20200131
  Receipt Date: 20200518
  Transmission Date: 20200713
  Serious: No
  Sender: FDA-Public Use
  Company Number: US-SA-2020SA025080

PATIENT
  Age: 53 Year
  Sex: Male

DRUGS (1)
  1. SARILUMAB [Suspect]
     Active Substance: SARILUMAB
     Indication: RHEUMATOID ARTHRITIS
     Dosage: 200 MG, QOW
     Route: 058
     Dates: start: 20191121, end: 202004

REACTIONS (4)
  - Unevaluable event [Unknown]
  - Injection site rash [Unknown]
  - Rash [Unknown]
  - Injection site swelling [Unknown]
